FAERS Safety Report 7117453-0 (Version None)
Quarter: 2010Q4

REPORT INFORMATION
  Report Type: 
  Country: None (occurrence: None)
  Receive Date: 20101122
  Receipt Date: 20101112
  Transmission Date: 20110411
  Serious: Yes (Hospitalization, Other)
  Sender: FDA-Public Use
  Company Number: US-AMGEN-QUU436551

PATIENT

DRUGS (9)
  1. NEULASTA [Suspect]
     Indication: CHEMOTHERAPY
     Dosage: 6 MG, UNK
     Route: 065
     Dates: start: 20100723
  2. NEUPOGEN [Suspect]
  3. DOCETAXEL [Concomitant]
  4. DOXORUBICIN HCL [Concomitant]
  5. CYCLOPHOSPHAMIDE [Concomitant]
  6. LAMIVUDINE [Concomitant]
     Indication: HEPATITIS B
  7. ATIVAN [Concomitant]
  8. ZOFRAN [Concomitant]
  9. TYLENOL W/ CODEINE [Concomitant]

REACTIONS (2)
  - FEBRILE NEUTROPENIA [None]
  - HYPERSENSITIVITY [None]
